FAERS Safety Report 5129246-4 (Version None)
Quarter: 2006Q4

REPORT INFORMATION
  Report Type: 
  Country: None (occurrence: None)
  Receive Date: 20061011
  Receipt Date: 20060928
  Transmission Date: 20070319
  Serious: Yes (Hospitalization)
  Sender: FDA-Public Use
  Company Number: 02100-JPN-06-0472

PATIENT
  Age: 63 Year
  Sex: Male

DRUGS (4)
  1. CILOSTAZOL [Suspect]
     Dosage: ORAL
     Route: 048
     Dates: end: 20060906
  2. CANDESARTAN CILEXETIL [Concomitant]
  3. CILNIDIPINE [Concomitant]
  4. LEVOTHYROXINE SODIUM [Concomitant]

REACTIONS (3)
  - OEDEMA PERIPHERAL [None]
  - PLEURAL EFFUSION [None]
  - SCROTAL OEDEMA [None]
